FAERS Safety Report 17676571 (Version 1)
Quarter: 2020Q2

REPORT INFORMATION
  Report Type: Spontaneous
  Country: IT (occurrence: IT)
  Receive Date: 20200416
  Receipt Date: 20200416
  Transmission Date: 20200714
  Serious: Yes (Hospitalization)
  Sender: FDA-Public Use
  Company Number: IT-MYLANLABS-2020M1037810

PATIENT
  Age: 84 Year
  Sex: Male

DRUGS (15)
  1. CORDARONE [Suspect]
     Active Substance: AMIODARONE HYDROCHLORIDE
     Indication: PRODUCT USED FOR UNKNOWN INDICATION
     Dosage: 1 DOSAGE FORM, QD
     Route: 048
     Dates: start: 20190101, end: 20191231
  2. COUMADIN [Concomitant]
     Active Substance: WARFARIN SODIUM
  3. ACARPHAGE [Concomitant]
     Active Substance: ACARBOSE
  4. LASIX [Concomitant]
     Active Substance: FUROSEMIDE
  5. ACETYLSALICYLIC ACID [Concomitant]
     Active Substance: ASPIRIN
  6. DOBETIN                            /00056201/ [Concomitant]
     Active Substance: CYANOCOBALAMIN
  7. SERTRALINE [Concomitant]
     Active Substance: SERTRALINE HYDROCHLORIDE
  8. ALENDRONATE SODIUM. [Concomitant]
     Active Substance: ALENDRONATE SODIUM
  9. ZAROXOLYN [Concomitant]
     Active Substance: METOLAZONE
  10. CETIRIZINE [Concomitant]
     Active Substance: CETIRIZINE HYDROCHLORIDE
  11. CARDURA [Concomitant]
     Active Substance: DOXAZOSIN MESYLATE
  12. TAREG [Concomitant]
     Active Substance: VALSARTAN
  13. BISOPROLOL [Suspect]
     Active Substance: BISOPROLOL
     Indication: PRODUCT USED FOR UNKNOWN INDICATION
     Dosage: 1 DOSAGE FORM, QD
     Route: 048
     Dates: start: 20190101, end: 20191231
  14. RANEXA [Concomitant]
     Active Substance: RANOLAZINE
  15. ZYLORIC [Concomitant]
     Active Substance: ALLOPURINOL

REACTIONS (1)
  - Electrocardiogram QT prolonged [Unknown]

NARRATIVE: CASE EVENT DATE: 20191231
